FAERS Safety Report 9915340 (Version 2)
Quarter: 2014Q1

REPORT INFORMATION
  Report Type: Report from Study
  Country: JP (occurrence: JP)
  Receive Date: 20140221
  Receipt Date: 20140228
  Transmission Date: 20141002
  Serious: Yes (Death)
  Sender: FDA-Public Use
  Company Number: JP-009507513-1402JPN010232

PATIENT
  Age: 72 Year
  Sex: Male
  Weight: 41 kg

DRUGS (5)
  1. TEMODAL [Suspect]
     Indication: GLIOBLASTOMA MULTIFORME
     Dosage: 75 MG/M2, QD
     Route: 042
     Dates: start: 20121106, end: 20121121
  2. TEMODAL [Suspect]
     Indication: GLIOBLASTOMA MULTIFORME
     Dosage: UNK
     Route: 048
     Dates: start: 20121011, end: 20121024
  3. NOVOLIN R [Concomitant]
     Route: 041
  4. GLYCEREB [Concomitant]
     Indication: GLIOBLASTOMA MULTIFORME
     Route: 041
  5. PREDONINE [Concomitant]
     Indication: GLIOBLASTOMA MULTIFORME
     Route: 042

REACTIONS (3)
  - Intracranial pressure increased [Fatal]
  - Pneumonia [Fatal]
  - Respiratory failure [Fatal]
